FAERS Safety Report 9214578 (Version 2)
Quarter: 2013Q2

REPORT INFORMATION
  Report Type: Spontaneous
  Country: US (occurrence: US)
  Receive Date: 20130405
  Receipt Date: 20130506
  Transmission Date: 20140414
  Serious: Yes (Other)
  Sender: FDA-Public Use
  Company Number: PHEH2013US007595

PATIENT
  Sex: Female

DRUGS (4)
  1. EXFORGE [Suspect]
  2. PAXIL [Concomitant]
  3. CARDURA [Concomitant]
  4. BISOPROLOL/HYDROCHLOROTHIAZID [Concomitant]

REACTIONS (8)
  - Intervertebral disc protrusion [Unknown]
  - Pain [Unknown]
  - Pain in extremity [Unknown]
  - Back pain [Unknown]
  - Blood pressure increased [Unknown]
  - Hypokinesia [Unknown]
  - Fall [Unknown]
  - Bronchitis [Unknown]
